FAERS Safety Report 24003717 (Version 1)
Quarter: 2024Q2

REPORT INFORMATION
  Report Type: Spontaneous
  Country: GB (occurrence: GB)
  Receive Date: 20240624
  Receipt Date: 20240624
  Transmission Date: 20240715
  Serious: Yes (Disabling)
  Sender: FDA-Public Use
  Company Number: None

PATIENT
  Sex: Female
  Weight: 53 kg

DRUGS (7)
  1. FLUCONAZOLE [Suspect]
     Active Substance: FLUCONAZOLE
     Indication: Oral candidiasis
     Route: 065
     Dates: start: 20240614, end: 20240616
  2. ASPIRIN [Concomitant]
     Active Substance: ASPIRIN
  3. LOSARTAN [Concomitant]
     Active Substance: LOSARTAN
  4. EZETIMIBE [Concomitant]
     Active Substance: EZETIMIBE
  5. PREDNISOLONE [Concomitant]
     Active Substance: PREDNISOLONE
  6. LANSOPRAZOLE [Concomitant]
     Active Substance: LANSOPRAZOLE
  7. LEVOTHYROXINE [Concomitant]
     Active Substance: LEVOTHYROXINE\LEVOTHYROXINE SODIUM

REACTIONS (1)
  - Vision blurred [Recovered/Resolved]
